FAERS Safety Report 16445440 (Version 1)
Quarter: 2019Q2

REPORT INFORMATION
  Report Type: Spontaneous
  Country: US (occurrence: US)
  Receive Date: 20190508
  Receipt Date: 20190508
  Transmission Date: 20190711
  Serious: Yes (Life-Threatening, Hospitalization)
  Sender: FDA-Public Use
  Company Number: None

PATIENT
  Age: 57 Year
  Sex: Male
  Weight: 106.5 kg

DRUGS (2)
  1. VERAPAMIL [Suspect]
     Active Substance: VERAPAMIL HYDROCHLORIDE
     Indication: CARDIAC FAILURE CONGESTIVE
     Dosage: ?          OTHER DOSE:2.5MG;OTHER ROUTE:UNKNOWN?
     Dates: start: 20190503, end: 20190503
  2. VERAPAMIL [Suspect]
     Active Substance: VERAPAMIL HYDROCHLORIDE
     Indication: SURGERY
     Dosage: ?          OTHER DOSE:2.5MG;OTHER ROUTE:UNKNOWN?
     Dates: start: 20190503, end: 20190503

REACTIONS (2)
  - Anaphylactic reaction [None]
  - Cardiac arrest [None]

NARRATIVE: CASE EVENT DATE: 20190503
